FAERS Safety Report 8711514 (Version 2)
Quarter: 2013Q4

REPORT INFORMATION
  Report Type: Spontaneous
  Country: US (occurrence: US)
  Receive Date: 20120418
  Receipt Date: 20131226
  Transmission Date: 20140711
  Serious: Yes (Other)
  Sender: FDA-Public Use
  Company Number: PHHY2011US23820

PATIENT
  Age: 66 Year
  Sex: Female

DRUGS (18)
  1. DIOVAN [Suspect]
     Dosage: 160 MG, QD
  2. HYDROCHLOROTHIAZIDE [Suspect]
     Dosage: UNK UKN, UNK
  3. PROPAFENONE [Suspect]
  4. BYSTOLIC [Suspect]
  5. SINGULAIR [Concomitant]
     Dosage: 10 MG, UNK
  6. SALAGEN [Concomitant]
  7. SKELAXIN [Concomitant]
  8. LEVOTHYROXINE [Concomitant]
  9. CLARINEX [Concomitant]
  10. NEURONTIN [Concomitant]
  11. ALVESCO [Concomitant]
  12. SPIRIVA [Concomitant]
  13. XOPENEX [Concomitant]
  14. LEFLUNOMIDE [Concomitant]
  15. ZOLPIDEM TARTRATE [Concomitant]
  16. NEXIUM [Concomitant]
  17. NITROSTAT [Concomitant]
  18. VITAMIN D [Concomitant]
     Dosage: 50000 IU, UNK

REACTIONS (4)
  - Blood pressure increased [Unknown]
  - Blood pressure decreased [Unknown]
  - Loss of consciousness [Unknown]
  - Dizziness [Unknown]
